FAERS Safety Report 21352957 (Version 3)
Quarter: 2023Q1

REPORT INFORMATION
  Report Type: Spontaneous
  Country: US (occurrence: US)
  Receive Date: 20220920
  Receipt Date: 20230327
  Transmission Date: 20230418
  Serious: No
  Sender: FDA-Public Use
  Company Number: US-SUN PHARMACEUTICAL INDUSTRIES LTD-2022R1-340161

PATIENT
  Age: 39 Year
  Sex: Female

DRUGS (3)
  1. WINLEVI [Suspect]
     Active Substance: CLASCOTERONE
     Indication: Product used for unknown indication
     Dosage: UNK, QD(ONCE A DAY)
     Route: 061
  2. WINLEVI [Suspect]
     Active Substance: CLASCOTERONE
     Dosage: UNK, QD(ONCE A DAY)
     Route: 061
  3. SPIRONOLACTONE [Suspect]
     Active Substance: SPIRONOLACTONE
     Indication: Product used for unknown indication
     Dosage: UNK
     Route: 065

REACTIONS (5)
  - Product use complaint [Unknown]
  - Product physical issue [Unknown]
  - Product dose omission issue [Unknown]
  - Urticaria [Unknown]
  - Hypertrichosis [Unknown]

NARRATIVE: CASE EVENT DATE: 20220918
